FAERS Safety Report 14127378 (Version 1)
Quarter: 2017Q4

REPORT INFORMATION
  Report Type: Spontaneous
  Country: US (occurrence: US)
  Receive Date: 20171026
  Receipt Date: 20171026
  Transmission Date: 20180321
  Serious: Yes (Other)
  Sender: FDA-Public Use
  Company Number: US-TEVA-743081USA

PATIENT
  Age: 77 Year
  Sex: Female

DRUGS (4)
  1. ACCUHEALTH [Concomitant]
  2. MULTIVITAMIN [Concomitant]
     Active Substance: VITAMINS
  3. CARBIDOPA AND LEVODOPA [Suspect]
     Active Substance: CARBIDOPA\LEVODOPA
     Indication: PARKINSON^S DISEASE
     Dates: start: 20160522
  4. VITAMIN B12 [Concomitant]
     Active Substance: CYANOCOBALAMIN

REACTIONS (5)
  - Drug effect incomplete [Unknown]
  - Sluggishness [Unknown]
  - Product substitution issue [Unknown]
  - Parkinson^s disease [Unknown]
  - Asthenopia [Unknown]
